FAERS Safety Report 4910733-6 (Version None)
Quarter: 2006Q1

REPORT INFORMATION
  Report Type: 
  Country: None (occurrence: None)
  Receive Date: 20060209
  Receipt Date: 20060209
  Transmission Date: 20060701
  Serious: Yes (Death, Hospitalization)
  Sender: FDA-Public Use
  Company Number: None

PATIENT
  Sex: Female
  Weight: 15.6 kg

DRUGS (3)
  1. DEXAMETHASONE SODIUM PHOSPHATE [Suspect]
     Indication: PRECURSOR B-LYMPHOBLASTIC LYMPHOMA
     Dosage: 90 MG
     Dates: start: 20060111, end: 20060125
  2. DOXORUBICIN HCL [Suspect]
     Dosage: 45 MG
     Dates: start: 20060111, end: 20060125
  3. VINCRISTINE SULFATE [Suspect]
     Dosage: 2.7 MG
     Dates: start: 20060111, end: 20060125

REACTIONS (8)
  - CAECITIS [None]
  - CARDIO-RESPIRATORY ARREST [None]
  - DIARRHOEA [None]
  - GASTROINTESTINAL NECROSIS [None]
  - HYPOPERFUSION [None]
  - HYPOTENSION [None]
  - PYREXIA [None]
  - THERAPY NON-RESPONDER [None]
